FAERS Safety Report 14384408 (Version 2)
Quarter: 2018Q2

REPORT INFORMATION
  Report Type: Not Available
  Country: US (occurrence: US)
  Receive Date: 20180115
  Receipt Date: 20180419
  Transmission Date: 20180711
  Serious: No
  Sender: FDA-Public Use
  Company Number: US-NEUROCRINE BIOSCIENCES INC.-2017NBI01440

PATIENT
  Age: 66 Year
  Sex: Female

DRUGS (1)
  1. INGREZZA [Suspect]
     Active Substance: VALBENAZINE
     Indication: TARDIVE DYSKINESIA
     Route: 048
     Dates: start: 20170912, end: 20171030

REACTIONS (3)
  - Loss of personal independence in daily activities [Unknown]
  - Lethargy [Unknown]
  - Somnolence [Unknown]

NARRATIVE: CASE EVENT DATE: 2017
